FAERS Safety Report 16861785 (Version 1)
Quarter: 2019Q3

REPORT INFORMATION
  Report Type: Spontaneous
  Country: DE (occurrence: DE)
  Receive Date: 20190927
  Receipt Date: 20190927
  Transmission Date: 20191005
  Serious: Yes (Death, Hospitalization)
  Sender: FDA-Public Use
  Company Number: DE-ROCHE-2413841

PATIENT
  Age: 46 Year
  Sex: Male

DRUGS (6)
  1. NIVOLUMAB [Suspect]
     Active Substance: NIVOLUMAB
     Indication: METASTATIC MALIGNANT MELANOMA
     Route: 065
     Dates: start: 201710
  2. VEMURAFENIB. [Suspect]
     Active Substance: VEMURAFENIB
     Dosage: REINTRODUCTION WITH 2-0-2
     Route: 065
     Dates: start: 20161215
  3. COBIMETINIB. [Suspect]
     Active Substance: COBIMETINIB
     Indication: METASTATIC MALIGNANT MELANOMA
     Dosage: DOSE REDUCTION TO 2-0-0
     Route: 065
     Dates: start: 20161022
  4. IPILIMUMAB [Suspect]
     Active Substance: IPILIMUMAB
     Indication: METASTATIC MALIGNANT MELANOMA
     Route: 065
     Dates: start: 201710
  5. VEMURAFENIB. [Suspect]
     Active Substance: VEMURAFENIB
     Indication: METASTATIC MALIGNANT MELANOMA
     Dosage: DOSE REDUCTION TO 3-0-3
     Route: 065
     Dates: start: 20161022
  6. COBIMETINIB. [Suspect]
     Active Substance: COBIMETINIB
     Dosage: REINTRODUCTION WITH 2-0-0
     Route: 065
     Dates: start: 20161215

REACTIONS (2)
  - Death [Fatal]
  - Rash [Recovered/Resolved]

NARRATIVE: CASE EVENT DATE: 20161101
